FAERS Safety Report 8253094-X (Version None)
Quarter: 2012Q2

REPORT INFORMATION
  Report Type: 
  Country: None (occurrence: None)
  Receive Date: 20120402
  Receipt Date: 20120301
  Transmission Date: 20120825
  Serious: No
  Sender: FDA-Public Use
  Company Number: US-AMGEN-USASP2012013773

PATIENT
  Age: 59 Year
  Sex: Female

DRUGS (1)
  1. ENBREL [Suspect]
     Indication: RHEUMATOID ARTHRITIS
     Dosage: 50 MG, QWK
     Dates: start: 20111104

REACTIONS (6)
  - RHINORRHOEA [None]
  - SINUS DISORDER [None]
  - MUSCLE SPASMS [None]
  - DYSPHONIA [None]
  - DYSPNOEA [None]
  - NASOPHARYNGITIS [None]
